FAERS Safety Report 8916143 (Version 1)
Quarter: 2012Q4

REPORT INFORMATION
  Report Type: 
  Country: US (occurrence: US)
  Receive Date: 20121120
  Receipt Date: 20121120
  Transmission Date: 20130627
  Serious: Yes (Hospitalization)
  Sender: FDA-Public Use
  Company Number: US-GLAXOSMITHKLINE-A0886366A

PATIENT
  Sex: Male

DRUGS (10)
  1. AVANDIA [Suspect]
     Indication: DIABETES MELLITUS
     Dosage: 8MG Per day
     Route: 048
     Dates: start: 2000, end: 200712
  2. PREDNISONE [Concomitant]
  3. PROGRAF [Concomitant]
  4. CELLCEPT [Concomitant]
  5. ATENOLOL [Concomitant]
  6. PEPCID [Concomitant]
  7. GLIPIZIDE [Concomitant]
  8. COZAAR [Concomitant]
  9. INSULIN [Concomitant]
  10. ZOCOR [Concomitant]

REACTIONS (3)
  - Cardiac failure congestive [Recovering/Resolving]
  - Cerebrovascular accident [Unknown]
  - Transient ischaemic attack [Unknown]
